FAERS Safety Report 15501143 (Version 1)
Quarter: 2018Q4

REPORT INFORMATION
  Report Type: Report from Study
  Country: FR (occurrence: FR)
  Receive Date: 20181015
  Receipt Date: 20181015
  Transmission Date: 20190205
  Serious: Yes (Hospitalization)
  Sender: FDA-Public Use
  Company Number: FR-SHIRE-FR201833360

PATIENT

DRUGS (2)
  1. IDURSULFASE [Suspect]
     Active Substance: IDURSULFASE
     Indication: MUCOPOLYSACCHARIDOSIS II
     Dosage: 0.52 MG/KG, 1X/WEEK
     Route: 065
     Dates: start: 20070202
  2. IDURSULFASE [Suspect]
     Active Substance: IDURSULFASE
     Dosage: 0.61 MG/KG, 1X/2WKS
     Route: 065
     Dates: start: 20140919

REACTIONS (2)
  - Cardiac failure [Unknown]
  - Cardio-respiratory arrest [Recovered/Resolved]

NARRATIVE: CASE EVENT DATE: 20170413
